FAERS Safety Report 7201181-7 (Version None)
Quarter: 2010Q4

REPORT INFORMATION
  Report Type: 
  Country: None (occurrence: None)
  Receive Date: 20101229
  Receipt Date: 20101221
  Transmission Date: 20110411
  Serious: Yes (Death, Hospitalization)
  Sender: FDA-Public Use
  Company Number: NL-CELGENEUS-114-21880-10071398

PATIENT
  Sex: Female
  Weight: 73 kg

DRUGS (17)
  1. REVLIMID [Suspect]
     Route: 048
     Dates: start: 20100624, end: 20100714
  2. REVLIMID [Suspect]
     Route: 048
     Dates: start: 20100802, end: 20100806
  3. APROVEL [Concomitant]
     Indication: HYPERTENSION
     Route: 048
     Dates: start: 20100412, end: 20100714
  4. METOPROLOL SUCCINATE [Concomitant]
     Indication: HYPERTENSION
     Route: 048
     Dates: start: 20060202
  5. METOPROLOL SUCCINATE [Concomitant]
     Route: 065
     Dates: start: 20081010
  6. METOPROLOL SUCCINATE [Concomitant]
     Route: 048
     Dates: start: 20100312
  7. METFORMIN [Concomitant]
     Indication: TYPE 2 DIABETES MELLITUS
     Route: 048
     Dates: start: 20100218, end: 20100714
  8. HYDROCHLOROTHIAZIDE [Concomitant]
     Indication: HYPERTENSION
     Route: 048
     Dates: start: 20070201, end: 20100714
  9. ACTONEL [Concomitant]
     Route: 065
     Dates: start: 20091014
  10. AMLODIPINE [Concomitant]
     Route: 065
     Dates: start: 20091006
  11. CALCICHEW D3 [Concomitant]
     Dosage: 500 MG/ 400 IU
     Route: 065
     Dates: start: 20090914
  12. INHIBIN DRAG [Concomitant]
     Route: 065
     Dates: start: 20090814
  13. NEORAL [Concomitant]
     Route: 065
     Dates: start: 20090716
  14. OMEPRAZOLE [Concomitant]
     Route: 065
     Dates: start: 20090817
  15. PREDNISOLONE [Concomitant]
     Route: 065
     Dates: start: 20080809
  16. PREDNISOLONE [Concomitant]
     Route: 065
     Dates: start: 20090217
  17. VITAMIN B-COMPLEX [Concomitant]
     Route: 065
     Dates: start: 20080509

REACTIONS (4)
  - DEATH [None]
  - DEHYDRATION [None]
  - HYPOTENSION [None]
  - TORSADE DE POINTES [None]
